FAERS Safety Report 4347590-5 (Version None)
Quarter: 2004Q1

REPORT INFORMATION
  Report Type: 
  Country: None (occurrence: None)
  Receive Date: 20040325
  Receipt Date: 20040204
  Transmission Date: 20041129
  Serious: No
  Sender: FDA-Public Use
  Company Number: US_0402100755

PATIENT
  Sex: Female

DRUGS (16)
  1. FORTEO [Suspect]
  2. ARAVA [Concomitant]
  3. VIOXX [Concomitant]
  4. COZAAR [Concomitant]
  5. PRAVACHOL [Concomitant]
  6. CARAFATE [Concomitant]
  7. OSCAL 500-D [Concomitant]
  8. FOLATE SODIUM [Concomitant]
  9. PREVACID [Concomitant]
  10. GLUCOSAMINE [Concomitant]
  11. ASPIRIN [Concomitant]
  12. ESTRATEST [Concomitant]
  13. CLARINEX [Concomitant]
  14. METHOTREXATE [Concomitant]
  15. RHINOCORT [Concomitant]
  16. TOPAMAX [Concomitant]

REACTIONS (2)
  - HYPOCALCAEMIA [None]
  - HYPOPHOSPHATAEMIA [None]
